FAERS Safety Report 7510795-6 (Version None)
Quarter: 2011Q2

REPORT INFORMATION
  Report Type: 
  Country: None (occurrence: None)
  Receive Date: 20110530
  Receipt Date: 20110525
  Transmission Date: 20111010
  Serious: Yes (Hospitalization)
  Sender: FDA-Public Use
  Company Number: ES-AMGEN-ESPCT2011024788

PATIENT
  Age: 68 Year
  Sex: Female

DRUGS (5)
  1. DIAZEPAM [Concomitant]
     Dosage: 5 MG, QD
  2. FLUOROURACIL [Concomitant]
     Dosage: 6330 MG, Q4WK
     Route: 042
     Dates: start: 20110404
  3. EUTIROX [Concomitant]
     Dosage: 50 A?G, QD
     Dates: start: 20040101
  4. PANITUMUMAB [Suspect]
     Indication: ANAL CANCER
     Dosage: 6 MG/KG, Q2WK
     Route: 042
     Dates: start: 20110404
  5. MITOMICINA C [Concomitant]
     Dosage: 16 MG, Q4WK
     Route: 042
     Dates: start: 20110404

REACTIONS (7)
  - HAEMOGLOBIN DECREASED [None]
  - SHOCK [None]
  - RED BLOOD CELL COUNT DECREASED [None]
  - TOXICITY TO VARIOUS AGENTS [None]
  - COLITIS [None]
  - LEUKOPENIA [None]
  - HAEMATOCRIT DECREASED [None]
